FAERS Safety Report 18006355 (Version 1)
Quarter: 2020Q3

REPORT INFORMATION
  Report Type: Spontaneous
  Country: US (occurrence: US)
  Receive Date: 20200710
  Receipt Date: 20200710
  Transmission Date: 20201103
  Serious: Yes (Life-Threatening, Hospitalization, Other)
  Sender: FDA-Public Use
  Company Number: None

PATIENT
  Age: 58 Year
  Sex: Male
  Weight: 84.15 kg

DRUGS (2)
  1. ENFORTUMAB VEDOTIN [Suspect]
     Active Substance: ENFORTUMAB VEDOTIN
  2. NAPROSYN [Concomitant]
     Active Substance: NAPROXEN
     Dates: start: 20200401, end: 20200618

REACTIONS (7)
  - Condition aggravated [None]
  - Myalgia [None]
  - Tremor [None]
  - Paraesthesia [None]
  - Dysarthria [None]
  - Blood creatinine increased [None]
  - Somnolence [None]

NARRATIVE: CASE EVENT DATE: 20200618
